FAERS Safety Report 6504633-8 (Version None)
Quarter: 2009Q4

REPORT INFORMATION
  Report Type: 
  Country: None (occurrence: None)
  Receive Date: 20091218
  Receipt Date: 20091211
  Transmission Date: 20100525
  Serious: Yes (Hospitalization)
  Sender: FDA-Public Use
  Company Number: GB-RANBAXY-2009RR-22688

PATIENT
  Age: 79 Year
  Sex: Female

DRUGS (4)
  1. GABAPENTIN [Suspect]
     Indication: TRIGEMINAL NEURALGIA
     Dosage: 300 MG, TID
     Route: 048
     Dates: start: 20090302, end: 20090305
  2. FUROSEMIDE [Concomitant]
  3. ORAMORPH SR [Concomitant]
  4. SIMVASTATIN [Concomitant]

REACTIONS (3)
  - LIVER FUNCTION TEST ABNORMAL [None]
  - ORTHOSTATIC HYPOTENSION [None]
  - PAIN [None]
